FAERS Safety Report 15487994 (Version 1)
Quarter: 2018Q4

REPORT INFORMATION
  Report Type: Spontaneous
  Country: US (occurrence: US)
  Receive Date: 20181003
  Receipt Date: 20181003
  Transmission Date: 20190205
  Serious: No
  Sender: FDA-Public Use
  Company Number: None

PATIENT
  Age: 54 Year
  Sex: Female

DRUGS (1)
  1. TACROLIMUS CAP 0.5MG [Suspect]
     Active Substance: TACROLIMUS
     Indication: TRANSPLANT
     Dates: start: 201501

REACTIONS (4)
  - Toxicity to various agents [None]
  - Abdominal discomfort [None]
  - Flatulence [None]
  - Nausea [None]

NARRATIVE: CASE EVENT DATE: 20180927
